FAERS Safety Report 13486190 (Version 2)
Quarter: 2018Q4

REPORT INFORMATION
  Report Type: Spontaneous
  Country: US (occurrence: US)
  Receive Date: 20170426
  Receipt Date: 20181126
  Transmission Date: 20190204
  Serious: Yes (Other)
  Sender: FDA-Public Use
  Company Number: US-SA-2017SA068059

PATIENT
  Age: 64 Year
  Sex: Male

DRUGS (2)
  1. ALLEGRA ALLERGY [Suspect]
     Active Substance: FEXOFENADINE HYDROCHLORIDE
     Indication: HYPERSENSITIVITY
     Dosage: UNK UNK, UNK
     Dates: start: 20170410
  2. ALLEGRA-D 24 HOUR [Suspect]
     Active Substance: FEXOFENADINE HYDROCHLORIDE\PSEUDOEPHEDRINE HYDROCHLORIDE
     Indication: MULTIPLE ALLERGIES
     Dosage: 180 MG,QD
     Route: 065
     Dates: start: 20170410, end: 20170411

REACTIONS (4)
  - Urinary retention [Recovering/Resolving]
  - Wrong product administered [Unknown]
  - Drug intolerance [Unknown]
  - Dysuria [Recovering/Resolving]

NARRATIVE: CASE EVENT DATE: 20170410
